FAERS Safety Report 9645284 (Version 1)
Quarter: 2013Q4

REPORT INFORMATION
  Report Type: Spontaneous
  Country: TR (occurrence: TR)
  Receive Date: 20131025
  Receipt Date: 20131025
  Transmission Date: 20140711
  Serious: Yes (Hospitalization)
  Sender: FDA-Public Use
  Company Number: PHHY2013TR118471

PATIENT
  Age: 1 Year
  Sex: Female

DRUGS (5)
  1. CICLOSPORIN [Suspect]
     Indication: PROPHYLAXIS AGAINST GRAFT VERSUS HOST DISEASE
     Route: 048
  2. METHOTREXATE [Suspect]
     Indication: PROPHYLAXIS AGAINST GRAFT VERSUS HOST DISEASE
  3. BUSULFAN [Concomitant]
     Dosage: 4 MG/KG/DAY
     Route: 042
  4. CYCLOPHOSPHAMIDE [Concomitant]
     Dosage: 50 MG/KG/DAY
     Route: 042
  5. ETOPOSIDE [Concomitant]
     Dosage: 300 MG/M2/DAY
     Route: 042

REACTIONS (11)
  - Toxicity to various agents [Unknown]
  - Myasthenia gravis [Unknown]
  - Eyelid ptosis [Unknown]
  - Dysphonia [Unknown]
  - Dyspnoea [Unknown]
  - Fatigue [Unknown]
  - Speech disorder [Unknown]
  - Chronic graft versus host disease [Unknown]
  - Hepatic enzyme increased [Unknown]
  - Rash maculo-papular [Unknown]
  - Respiratory failure [Unknown]
